FAERS Safety Report 8771171 (Version 1)
Quarter: 2012Q4

REPORT INFORMATION
  Report Type: 
  Country: GB (occurrence: GB)
  Receive Date: 20120906
  Receipt Date: 20120906
  Transmission Date: 20130627
  Serious: Yes (Life-Threatening, Other)
  Sender: FDA-Public Use
  Company Number: GB-PFIZER INC-2012218392

PATIENT
  Age: 25 Year
  Sex: Male
  Weight: 93 kg

DRUGS (3)
  1. CHAMPIX [Suspect]
     Indication: SMOKING CESSATION THERAPY
     Dosage: Titration
     Route: 048
     Dates: start: 20120814
  2. NAPROXEN [Concomitant]
  3. PREDNISOLONE [Concomitant]

REACTIONS (4)
  - Intentional overdose [Unknown]
  - Personality change [Recovered/Resolved]
  - Vomiting [Recovered/Resolved]
  - Stress [Recovered/Resolved]
